FAERS Safety Report 13961348 (Version 1)
Quarter: 2017Q3

REPORT INFORMATION
  Report Type: Report from Study
  Country: CA (occurrence: CA)
  Receive Date: 20170912
  Receipt Date: 20170912
  Transmission Date: 20171128
  Serious: Yes (Other)
  Sender: FDA-Public Use
  Company Number: CA-REGENERON PHARMACEUTICALS, INC.-2017-21724

PATIENT

DRUGS (1)
  1. EYLEA [Suspect]
     Active Substance: AFLIBERCEPT
     Indication: RETINAL VEIN OCCLUSION
     Dosage: DOSE AND FREQUENCY NOT REPORTED. TOTAL NUMBER OF DOSES RECEIVED NOT REPORTED.
     Dates: start: 20170825

REACTIONS (1)
  - Neoplasm malignant [Not Recovered/Not Resolved]
